FAERS Safety Report 5849917-1 (Version None)
Quarter: 2008Q3

REPORT INFORMATION
  Report Type: 
  Country: None (occurrence: None)
  Receive Date: 20080731
  Receipt Date: 20080528
  Transmission Date: 20090109
  Serious: No
  Sender: FDA-Public Use
  Company Number: US200806000978

PATIENT
  Age: 49 Year
  Sex: Female
  Weight: 112.5 kg

DRUGS (3)
  1. BYETTA [Suspect]
     Indication: TYPE 2 DIABETES MELLITUS
     Dosage: 5 UG, 2/D, SUBCUTANEOUS ; 10 UG, 2/D
     Route: 058
     Dates: start: 20050101, end: 20050101
  2. BYETTA [Suspect]
     Indication: TYPE 2 DIABETES MELLITUS
     Dosage: 5 UG, 2/D, SUBCUTANEOUS ; 10 UG, 2/D
     Route: 058
     Dates: start: 20050101
  3. FORTAMET (METFORMIN HYDROCHLORIDE) [Concomitant]

REACTIONS (5)
  - DARK CIRCLES UNDER EYES [None]
  - EYE SWELLING [None]
  - FEELING ABNORMAL [None]
  - VOMITING [None]
  - WEIGHT INCREASED [None]
